FAERS Safety Report 13643963 (Version 1)
Quarter: 2017Q2

REPORT INFORMATION
  Report Type: Spontaneous
  Country: US (occurrence: US)
  Receive Date: 20170612
  Receipt Date: 20170612
  Transmission Date: 20170830
  Serious: Yes (Hospitalization, Other)
  Sender: FDA-Public Use
  Company Number: US-BRISTOL-MYERS SQUIBB COMPANY-BMS-2017-050308

PATIENT
  Sex: Male
  Weight: 113.3 kg

DRUGS (1)
  1. YERVOY [Suspect]
     Active Substance: IPILIMUMAB
     Indication: MALIGNANT MELANOMA
     Dosage: THREE
     Route: 042
     Dates: start: 201704

REACTIONS (2)
  - Malignant neoplasm progression [Unknown]
  - Guillain-Barre syndrome [Unknown]
